FAERS Safety Report 8946878 (Version 1)
Quarter: 2012Q4

REPORT INFORMATION
  Report Type: 
  Country: US (occurrence: US)
  Receive Date: 20121205
  Receipt Date: 20121205
  Transmission Date: 20130627
  Serious: No
  Sender: FDA-Public Use
  Company Number: US-BAYER-2012-127000

PATIENT
  Sex: Female
  Weight: 86.17 kg

DRUGS (6)
  1. BETASERON [Suspect]
     Dosage: 0.062 mg, QOD
     Route: 058
  2. BETASERON [Suspect]
     Dosage: 0.125 mg, QOD
     Route: 058
  3. BETASERON [Suspect]
     Dosage: 0.187 mg, QOD
     Route: 058
  4. BETASERON [Suspect]
     Dosage: 0.25 mg, QOD
     Route: 058
  5. LEVOTHYROXINE [Concomitant]
     Dosage: 100 ?g, UNK
  6. VITAMIN D [Concomitant]
     Dosage: 1000 u, UNK

REACTIONS (4)
  - Headache [Unknown]
  - Fatigue [Unknown]
  - Paraesthesia [Unknown]
  - Memory impairment [Unknown]
